FAERS Safety Report 8535613-9 (Version None)
Quarter: 2012Q3

REPORT INFORMATION
  Report Type: 
  Country: None (occurrence: None)
  Receive Date: 20120725
  Receipt Date: 20120716
  Transmission Date: 20120928
  Serious: Yes (Hospitalization, Other)
  Sender: FDA-Public Use
  Company Number: US-BAYER-2012-072396

PATIENT
  Age: 45 Year
  Sex: Female
  Weight: 103.4 kg

DRUGS (7)
  1. NAPROXEN [Concomitant]
     Dosage: 500 MG, UNK
     Route: 048
  2. ALEVE [Concomitant]
     Dosage: UNK
     Route: 048
  3. ADVAIR DISKUS 100/50 [Concomitant]
     Dosage: 100-50 MCG, UNK
     Dates: start: 20101229
  4. PROAIR HFA [Concomitant]
     Dosage: UNK
     Dates: start: 20110207
  5. FLONASE [Concomitant]
     Dosage: 50 MCG, UNK
     Dates: start: 20101229
  6. IBUPROFEN [Concomitant]
     Dosage: 600 MG, UNK
     Route: 048
  7. YASMIN [Suspect]
     Indication: MENORRHAGIA

REACTIONS (2)
  - PULMONARY EMBOLISM [None]
  - THROMBOPHLEBITIS SUPERFICIAL [None]
